FAERS Safety Report 17839571 (Version 4)
Quarter: 2021Q4

REPORT INFORMATION
  Report Type: Spontaneous
  Country: US (occurrence: US)
  Receive Date: 20200529
  Receipt Date: 20211129
  Transmission Date: 20220303
  Serious: No
  Sender: FDA-Public Use
  Company Number: US-PFIZER INC-2020197925

PATIENT
  Age: 12 Year
  Sex: Male
  Weight: 49.9 kg

DRUGS (1)
  1. GENOTROPIN [Suspect]
     Active Substance: SOMATROPIN
     Indication: Growth retardation
     Dosage: 1.2 MG, DAILY
     Dates: start: 2016, end: 202005

REACTIONS (5)
  - Incorrect dose administered [Unknown]
  - Product quality issue [Unknown]
  - Device information output issue [Unknown]
  - Device power source issue [Unknown]
  - Device issue [Unknown]

NARRATIVE: CASE EVENT DATE: 20200507
